FAERS Safety Report 21744558 (Version 1)
Quarter: 2022Q4

REPORT INFORMATION
  Report Type: Spontaneous
  Country: ES (occurrence: ES)
  Receive Date: 20221218
  Receipt Date: 20221218
  Transmission Date: 20230113
  Serious: Yes (Other)
  Sender: FDA-Public Use
  Company Number: ES-ENDO PHARMACEUTICALS INC-2022-006591

PATIENT
  Age: 77 Year
  Sex: Female

DRUGS (1)
  1. QUETIAPINE FUMARATE [Suspect]
     Active Substance: QUETIAPINE FUMARATE
     Indication: Behaviour disorder
     Dosage: UNK UNKNOWN, UNKNOWN (HIGH DOSES)
     Route: 065

REACTIONS (2)
  - Acute hepatic failure [Unknown]
  - Off label use [Recovered/Resolved]
